FAERS Safety Report 5905931-9 (Version None)
Quarter: 2008Q4

REPORT INFORMATION
  Report Type: 
  Country: None (occurrence: None)
  Receive Date: 20081001
  Receipt Date: 20081001
  Transmission Date: 20090506
  Serious: Yes (Life-Threatening)
  Sender: FDA-Public Use
  Company Number: None

PATIENT
  Age: 51 Year
  Sex: Female
  Weight: 81.6475 kg

DRUGS (1)
  1. BACTRIM DS [Suspect]
     Indication: STAPHYLOCOCCAL INFECTION
     Dosage: 2 TABLETS TWICE DAILY PO
     Route: 048
     Dates: start: 20080726, end: 20080804

REACTIONS (4)
  - BONE MARROW FAILURE [None]
  - CHILLS [None]
  - HEADACHE [None]
  - PYREXIA [None]
